FAERS Safety Report 5082185-X (Version None)
Quarter: 2006Q3

REPORT INFORMATION
  Report Type: 
  Country: None (occurrence: None)
  Receive Date: 20060814
  Receipt Date: 20060803
  Transmission Date: 20061208
  Serious: Yes (Hospitalization)
  Sender: FDA-Public Use
  Company Number: B0433560A

PATIENT
  Age: 17 Year
  Sex: Female
  Weight: 4.536 kg

DRUGS (2)
  1. EPIVIR [Suspect]
     Dosage: 150 MG/ORAL
     Route: 048
  2. EFAVIRENZ TABLET (EFAVIRENZ) [Suspect]
     Dosage: 600 MG/ORAL
     Route: 048

REACTIONS (14)
  - ABDOMINAL PAIN LOWER [None]
  - ABNORMAL DREAMS [None]
  - AGITATION [None]
  - BLOOD CREATINE PHOSPHOKINASE INCREASED [None]
  - CLUMSINESS [None]
  - DIARRHOEA [None]
  - EUPHORIC MOOD [None]
  - MULTIPLE DRUG OVERDOSE INTENTIONAL [None]
  - MUSCLE SPASMS [None]
  - PRURITUS [None]
  - RASH MACULAR [None]
  - SOMNOLENCE [None]
  - SUICIDAL IDEATION [None]
  - VOMITING [None]
